FAERS Safety Report 5090413-X (Version None)
Quarter: 2006Q3

REPORT INFORMATION
  Report Type: 
  Country: None (occurrence: None)
  Receive Date: 20060828
  Receipt Date: 20060327
  Transmission Date: 20061208
  Serious: Yes (Other)
  Sender: FDA-Public Use
  Company Number: US-GLAXOSMITHKLINE-A0599175A

PATIENT
  Sex: Male

DRUGS (1)
  1. WELLBUTRIN [Suspect]
     Indication: DRUG USE FOR UNKNOWN INDICATION
     Dosage: 150MG PER DAY
     Route: 048

REACTIONS (3)
  - CONVULSION [None]
  - FALL [None]
  - TOOTH LOSS [None]
